FAERS Safety Report 9191507 (Version 1)
Quarter: 2013Q1

REPORT INFORMATION
  Report Type: Spontaneous
  Country: US (occurrence: US)
  Receive Date: 20130326
  Receipt Date: 20130326
  Transmission Date: 20140127
  Serious: No
  Sender: FDA-Public Use
  Company Number: US-ASTRAZENECA-2013SE18445

PATIENT
  Age: 55 Year
  Sex: Female
  Weight: 51.3 kg

DRUGS (5)
  1. NEXIUM [Suspect]
     Indication: GASTROOESOPHAGEAL REFLUX DISEASE
     Route: 048
     Dates: end: 200906
  2. TELEPRAM [Concomitant]
     Indication: AFFECTIVE DISORDER
     Dates: start: 200801
  3. LEVOXYL [Concomitant]
     Indication: THYROID DISORDER
     Dosage: 137MCG DAILY
  4. XANAX [Concomitant]
     Indication: ANXIETY
  5. NAPROXEN [Concomitant]
     Indication: ARTHRITIS

REACTIONS (3)
  - Gastrooesophageal reflux disease [Unknown]
  - Thyroid function test abnormal [Unknown]
  - Drug dose omission [Unknown]
